FAERS Safety Report 19069145 (Version 1)
Quarter: 2021Q1

REPORT INFORMATION
  Report Type: Spontaneous
  Country: CN (occurrence: CN)
  Receive Date: 20210329
  Receipt Date: 20210329
  Transmission Date: 20210420
  Serious: Yes (Other)
  Sender: FDA-Public Use
  Company Number: CN-PURDUE-USA-2021-0237614

PATIENT
  Age: 70 Year
  Sex: Male
  Weight: 44.1 kg

DRUGS (1)
  1. OXYCODONE HYDROCHLORIDE. [Suspect]
     Active Substance: OXYCODONE HYDROCHLORIDE
     Indication: ANALGESIC THERAPY
     Dosage: UNK MG, BID 20 MG AM AND 40 MG PM
     Route: 048
     Dates: start: 20201009, end: 20201012

REACTIONS (2)
  - Delirium [Recovering/Resolving]
  - Nervous system injury [Recovering/Resolving]

NARRATIVE: CASE EVENT DATE: 20201012
